FAERS Safety Report 10143275 (Version 1)
Quarter: 2014Q2

REPORT INFORMATION
  Report Type: Report from Study
  Country: US (occurrence: US)
  Receive Date: 20140430
  Receipt Date: 20140430
  Transmission Date: 20141212
  Serious: Yes (Death)
  Sender: FDA-Public Use
  Company Number: US-IAC KOREA XML-USA-2014-0113325

PATIENT
  Age: 44 Year
  Sex: Male

DRUGS (2)
  1. OXY CR TAB [Suspect]
     Indication: NEOPLASM MALIGNANT
     Dosage: 20 MG, BID
     Route: 048
     Dates: start: 20140319, end: 20140410
  2. OXY CR TAB [Suspect]
     Dosage: UNK
     Route: 048
     Dates: start: 2013

REACTIONS (1)
  - Malignant neoplasm progression [Fatal]
